FAERS Safety Report 17485249 (Version 3)
Quarter: 2020Q1

REPORT INFORMATION
  Report Type: Report from Study
  Country: BR (occurrence: BR)
  Receive Date: 20200302
  Receipt Date: 20200330
  Transmission Date: 20200409
  Serious: Yes (Other)
  Sender: FDA-Public Use
  Company Number: BR-JNJFOC-20190718968

PATIENT
  Age: 26 Year
  Sex: Female
  Weight: 39 kg

DRUGS (3)
  1. RECONTER [Concomitant]
     Active Substance: ESCITALOPRAM OXALATE
  2. PURAN [Concomitant]
     Active Substance: LEVOTHYROXINE SODIUM
     Dosage: 112 MICROGRAM
  3. STELARA [Suspect]
     Active Substance: USTEKINUMAB
     Indication: CROHN^S DISEASE
     Route: 058
     Dates: start: 20190515

REACTIONS (7)
  - Small intestinal stenosis [Unknown]
  - Liver disorder [Recovering/Resolving]
  - Product prescribing error [Unknown]
  - Crohn^s disease [Not Recovered/Not Resolved]
  - Inappropriate schedule of product administration [Unknown]
  - Off label use [Unknown]
  - Product dose omission [Unknown]

NARRATIVE: CASE EVENT DATE: 201907
